FAERS Safety Report 6241267-7 (Version None)
Quarter: 2009Q2

REPORT INFORMATION
  Report Type: 
  Country: None (occurrence: None)
  Receive Date: 20090623
  Receipt Date: 20090616
  Transmission Date: 20091009
  Serious: Yes (Hospitalization)
  Sender: FDA-Public Use
  Company Number: DE-AMGEN-UK347654

PATIENT
  Sex: Male
  Weight: 67 kg

DRUGS (3)
  1. MIMPARA [Suspect]
     Indication: HYPERPARATHYROIDISM SECONDARY
     Route: 048
     Dates: start: 20081203, end: 20090120
  2. METOPROLOL TARTRATE [Concomitant]
     Route: 048
  3. DELIX [Concomitant]
     Route: 065

REACTIONS (3)
  - ABDOMINAL PAIN [None]
  - NAUSEA [None]
  - PERITONITIS BACTERIAL [None]
